FAERS Safety Report 7640799-4 (Version None)
Quarter: 2011Q3

REPORT INFORMATION
  Report Type: 
  Country: None (occurrence: None)
  Receive Date: 20110728
  Receipt Date: 20110419
  Transmission Date: 20111222
  Serious: No
  Sender: FDA-Public Use
  Company Number: US-MUTUAL PHARMACEUTICAL COMPANY, INC.-CLCY20110043

PATIENT
  Age: 84 Year
  Sex: Male

DRUGS (3)
  1. LISINOPRIL [Concomitant]
     Indication: HYPERTENSION
     Route: 048
  2. COLCRYS [Suspect]
     Indication: GOUT
     Route: 048
     Dates: start: 20110415, end: 20110418
  3. PLAVIX [Concomitant]
     Indication: PERIPHERAL VASCULAR DISORDER
     Route: 048
     Dates: start: 20101101

REACTIONS (1)
  - DIARRHOEA [None]
